FAERS Safety Report 8620923-7 (Version None)
Quarter: 2012Q3

REPORT INFORMATION
  Report Type: 
  Country: None (occurrence: None)
  Receive Date: 20120824
  Receipt Date: 20120820
  Transmission Date: 20120928
  Serious: Yes (Other)
  Sender: FDA-Public Use
  Company Number: US-PFIZER INC-2008056816

PATIENT
  Age: 47 Year
  Sex: Female
  Weight: 77.098 kg

DRUGS (30)
  1. NUVIGIL [Concomitant]
     Dosage: 250 MG, 1X/DAY
  2. HALCION [Suspect]
     Indication: SLEEP DISORDER
     Dosage: 0.25 MG, 1X/DAY
     Route: 048
     Dates: start: 20060101
  3. CYMBALTA [Suspect]
     Indication: DEPRESSION
     Dosage: 60 MG, 2X/DAY
     Route: 048
     Dates: start: 20080101, end: 20120101
  4. REBIF [Suspect]
     Indication: MULTIPLE SCLEROSIS
     Dosage: UNK, THREE DAYS IN A WEEK
     Dates: start: 20080701, end: 20090701
  5. COPAXANE [Concomitant]
     Dosage: 40 MG, UNK
  6. FUROSEMIDE [Concomitant]
     Dosage: 30 MG, DAILY
  7. HYDROCODONE [Concomitant]
     Dosage: SIX TIMES A DAY
  8. CREON 12000 [Concomitant]
     Dosage: UNK, 2X/DAY
  9. METHOCARBAMOL [Concomitant]
     Dosage: 500 MG, 3X/DAY
  10. VENTOLIN [Concomitant]
     Dosage: 90 UG, AS NEEDED
  11. LYRICA [Suspect]
     Indication: FIBROMYALGIA
     Dosage: 75 MG, 2X/DAY
     Dates: start: 20080101, end: 20080101
  12. TRIAZOLAM [Concomitant]
     Dosage: 0.5 MG, DAILY
  13. NEXIUM [Concomitant]
     Dosage: 40 MG, 2X/DAY
  14. NAPROXEN [Concomitant]
     Dosage: 500 MG, 2X/DAY
  15. ONDANSETRON [Concomitant]
     Dosage: 8 MG, 2X/DAY
  16. FLUTICASONE PROPIONATE [Concomitant]
     Dosage: 100/50 UG, 2X/DAY
  17. TRIAZOLAM [Concomitant]
     Dosage: UNK, 2X/DAY
  18. FUROSEMIDE [Concomitant]
     Dosage: 40 MG, 1X/DAY
  19. CYMBALTA [Suspect]
     Indication: FIBROMYALGIA
     Dosage: 60 MG, DAILY
     Route: 048
     Dates: start: 20080101
  20. LEVOTHYROXINE SODIUM [Concomitant]
     Dosage: 112 UG, 1X/DAY
  21. HYDROCODONE BITARTRATE AND IBUPROFEN [Concomitant]
     Dosage: UNK
  22. FENTANYL [Concomitant]
     Dosage: 20 MG, 4X/DAY
  23. MORPHINE [Concomitant]
     Dosage: 30 MG, UNK
  24. LEVOTHYROXINE SODIUM [Concomitant]
     Indication: HYPOTHYROIDISM
     Dosage: 88 UG, 1X/DAY
  25. HYDROCODONE BITARTRATE + ACETAMINOPHEN [Concomitant]
     Dosage: 20/650 MG(TWO OF 10/325MG), 2X/DAY
  26. LISINOPRIL [Concomitant]
     Indication: HYPERTENSION
     Dosage: 20 MG, 2X/DAY
  27. LYRICA [Suspect]
     Dosage: UNK
     Route: 048
     Dates: start: 20080101, end: 20080601
  28. FLEXERIL [Concomitant]
     Dosage: 40 MG, DAILY
  29. CARAFATE [Concomitant]
     Dosage: TWO TEASPOONFUL, 2X/DAY
  30. NUVIGIL [Concomitant]
     Dosage: 50 MG, 1X/DAY

REACTIONS (12)
  - WEIGHT INCREASED [None]
  - OESOPHAGEAL RUPTURE [None]
  - NECK SURGERY [None]
  - PAIN [None]
  - MULTIPLE SCLEROSIS [None]
  - DIPLOPIA [None]
  - ANXIETY [None]
  - DEPRESSION [None]
  - VISUAL IMPAIRMENT [None]
  - EYE PAIN [None]
  - FIBROMYALGIA [None]
  - INTERVERTEBRAL DISC DISORDER [None]
